FAERS Safety Report 18929417 (Version 1)
Quarter: 2021Q1

REPORT INFORMATION
  Report Type: Spontaneous
  Country: GB (occurrence: GB)
  Receive Date: 20210223
  Receipt Date: 20210223
  Transmission Date: 20210420
  Serious: Yes (Hospitalization, Other)
  Sender: FDA-Public Use
  Company Number: GB-PERRIGO-21GB002337

PATIENT

DRUGS (1)
  1. PARACETAMOL [Suspect]
     Active Substance: ACETAMINOPHEN
     Indication: BECKER^S MUSCULAR DYSTROPHY
     Dosage: UP TO FOUR TIMES A DAY. HE RECEIVED EIGHT GRAMS OF PARACETAMOL OVER FOUR DAYS IN LIQUID FORM
     Route: 048

REACTIONS (1)
  - Drug-induced liver injury [Recovered/Resolved]
